FAERS Safety Report 24861631 (Version 4)
Quarter: 2025Q1

REPORT INFORMATION
  Report Type: Report from Study
  Country: US (occurrence: US)
  Receive Date: 20250120
  Receipt Date: 20250227
  Transmission Date: 20250409
  Serious: Yes (Hospitalization, Other)
  Sender: GILEAD
  Company Number: US-GILEAD-2025-0700336

PATIENT
  Sex: Male

DRUGS (5)
  1. AMBRISENTAN [Suspect]
     Active Substance: AMBRISENTAN
     Indication: Pulmonary hypertension
     Dosage: 5 MG, QD
     Route: 065
     Dates: start: 20241227
  2. AMBRISENTAN [Suspect]
     Active Substance: AMBRISENTAN
     Indication: Pulmonary arterial hypertension
  3. ELIQUIS [Concomitant]
     Active Substance: APIXABAN
  4. SILDENAFIL CITRATE [Concomitant]
     Active Substance: SILDENAFIL CITRATE
  5. TYVASO [Concomitant]
     Active Substance: TREPROSTINIL

REACTIONS (10)
  - Acute kidney injury [Unknown]
  - Fall [Recovered/Resolved]
  - Neck injury [Unknown]
  - Spinal fracture [Unknown]
  - Back injury [Unknown]
  - Epistaxis [Unknown]
  - Dyspnoea [Unknown]
  - Fatigue [Unknown]
  - Peripheral swelling [Unknown]
  - Peripheral swelling [Unknown]
